FAERS Safety Report 6226147-5 (Version None)
Quarter: 2009Q2

REPORT INFORMATION
  Report Type: 
  Country: None (occurrence: None)
  Receive Date: 20090610
  Receipt Date: 20090526
  Transmission Date: 20091009
  Serious: Yes (Hospitalization, Other)
  Sender: FDA-Public Use
  Company Number: 2008000977

PATIENT
  Age: 69 Year
  Sex: Male

DRUGS (10)
  1. ERLOTINIB (ERLOTINB HCL) (TABLET) (ERLOTINIB HCL) [Suspect]
     Indication: LUNG SQUAMOUS CELL CARCINOMA STAGE UNSPECIFIED
     Dosage: 150 MG, QD, ORAL
     Route: 048
     Dates: start: 20080321, end: 20080402
  2. CEFTRIAXONE [Suspect]
     Indication: LUNG SQUAMOUS CELL CARCINOMA STAGE UNSPECIFIED
     Dosage: 2 GM, QD, INTRAVENOUS
     Route: 042
     Dates: start: 20080402
  3. FUNGIZONE [Suspect]
  4. DECADRON [Suspect]
  5. LOXONIN (LOXOPROFEN SODIUM) [Concomitant]
  6. FAMOTIDINE [Concomitant]
  7. LENDORM [Concomitant]
  8. ROCEPHIN [Concomitant]
  9. RISPERDAL [Concomitant]
  10. GRAMALIL (TIAPRIDE HYDROCHLORIDE) [Concomitant]

REACTIONS (9)
  - CATHETER RELATED INFECTION [None]
  - ERYTHEMA MULTIFORME [None]
  - HEPATIC FUNCTION ABNORMAL [None]
  - LIP EROSION [None]
  - LIP SWELLING [None]
  - MALIGNANT NEOPLASM PROGRESSION [None]
  - NON-SMALL CELL LUNG CANCER [None]
  - ORAL HERPES [None]
  - PYREXIA [None]
